FAERS Safety Report 12618256 (Version 1)
Quarter: 2016Q3

REPORT INFORMATION
  Report Type: Spontaneous
  Country: US (occurrence: None)
  Receive Date: 20160802
  Receipt Date: 20160802
  Transmission Date: 20161109
  Serious: Yes (Death, Hospitalization)
  Sender: FDA-Public Use
  Company Number: None

PATIENT
  Age: 21 Year
  Sex: Male
  Weight: 133.8 kg

DRUGS (5)
  1. VINCRISTINE SULFATE. [Suspect]
     Active Substance: VINCRISTINE SULFATE
     Dates: end: 20160624
  2. ONCASPAR [Suspect]
     Active Substance: PEGASPARGASE
     Dates: end: 20160603
  3. METHOTREXATE. [Suspect]
     Active Substance: METHOTREXATE
     Dates: end: 20160710
  4. MITOXANTRONE HYDROCHLORIDE. [Suspect]
     Active Substance: MITOXANTRONE HYDROCHLORIDE
     Dates: end: 20160704
  5. DEXAMETHASONE. [Suspect]
     Active Substance: DEXAMETHASONE
     Dates: end: 20160622

REACTIONS (14)
  - Fungal infection [None]
  - Brain oedema [None]
  - Brain death [None]
  - Histiocytosis haematophagic [None]
  - Septic shock [None]
  - Escherichia bacteraemia [None]
  - Brain herniation [None]
  - Serum ferritin increased [None]
  - Cerebral hypoperfusion [None]
  - Fluid overload [None]
  - Adenovirus test positive [None]
  - Pancytopenia [None]
  - Bilirubin conjugated increased [None]
  - Cerebral haemorrhage [None]

NARRATIVE: CASE EVENT DATE: 20160717
